FAERS Safety Report 13160096 (Version 4)
Quarter: 2017Q1

REPORT INFORMATION
  Report Type: Spontaneous
  Country: None (occurrence: FR)
  Receive Date: 20170127
  Receipt Date: 20170314
  Transmission Date: 20170428
  Serious: Yes (Death)
  Sender: FDA-Public Use
  Company Number: FR-MERZ NORTH AMERICA, INC.-17MRZ-00026

PATIENT
  Age: 52 Year
  Sex: Female

DRUGS (5)
  1. ASCLERA [Suspect]
     Active Substance: POLIDOCANOL
     Indication: VARICOSE VEIN
     Dosage: 6 ML
     Route: 042
     Dates: end: 20170116
  2. XARELTO [Concomitant]
     Active Substance: RIVAROXABAN
  3. ALDACTONE [Concomitant]
     Active Substance: SPIRONOLACTONE
  4. TEMERIT [Concomitant]
     Active Substance: NEBIVOLOL
  5. COUMADIN [Concomitant]
     Active Substance: WARFARIN SODIUM

REACTIONS (3)
  - Fall [Fatal]
  - Cardio-respiratory arrest [Fatal]
  - Feeling abnormal [Fatal]

NARRATIVE: CASE EVENT DATE: 20170116
